FAERS Safety Report 12656850 (Version 2)
Quarter: 2016Q3

REPORT INFORMATION
  Report Type: Spontaneous
  Country: JP (occurrence: JP)
  Receive Date: 20160816
  Receipt Date: 20160915
  Transmission Date: 20161109
  Serious: Yes (Hospitalization, Other)
  Sender: FDA-Public Use
  Company Number: JP-009507513-1608JPN007468

PATIENT
  Age: 79 Year
  Sex: Female
  Weight: 46.5 kg

DRUGS (10)
  1. REBETOL [Suspect]
     Active Substance: RIBAVIRIN
     Indication: CHRONIC HEPATITIS C
     Dosage: 600 MG, DAILY (DIVIDED DOSE, FREQUENCY UNKNOWN)
     Route: 048
     Dates: start: 20151127, end: 20160218
  2. DOGMATYL [Concomitant]
     Active Substance: SULPIRIDE
     Indication: DEPRESSION
     Dosage: 150 MG, DAILY (DIVIDED DOSE, FREQUENCY UNKNOWN)
     Route: 048
     Dates: start: 20081220
  3. SOVALDI [Suspect]
     Active Substance: SOFOSBUVIR
     Dosage: 400 MG, DAILY (DIVIDED DOSE, FREQUENCY UNKNOWN)
     Route: 048
     Dates: start: 20151127, end: 20160219
  4. ALLELOCK [Concomitant]
     Active Substance: OLOPATADINE HYDROCHLORIDE
     Indication: RASH
     Dosage: 10 MG, QD (DIVIDED DOSE FREQUENCY UNKNOWN)
     Route: 048
     Dates: start: 20151211
  5. URSO [Concomitant]
     Active Substance: URSODIOL
     Indication: CHRONIC HEPATITIS C
     Dosage: 600 MG, DAILY (DIVIDED DOSE, FREQUENCY UNKNOWN)
     Route: 048
     Dates: start: 20090314
  6. HALCION [Concomitant]
     Active Substance: TRIAZOLAM
     Indication: INSOMNIA
     Dosage: 0.25 MG, DAILY (DIVIDED DOSE, FREQUENCY UNKNOWN)
     Route: 048
     Dates: start: 20090328
  7. SILECE [Concomitant]
     Active Substance: FLUNITRAZEPAM
     Indication: INSOMNIA
     Dosage: 1 MG, DAILY (DIVIDED DOSE, FREQUENCY UNKNOWN)
     Route: 048
     Dates: start: 20120608
  8. PAXIL CR [Concomitant]
     Active Substance: PAROXETINE HYDROCHLORIDE
     Indication: DEPRESSION
     Dosage: 12.5 MG, DAILY (DIVIDED DOSE, FREQUENCY UNKNOWN)
     Route: 048
     Dates: start: 20140609
  9. RIZE [Concomitant]
     Active Substance: CLOTIAZEPAM
     Indication: ANXIETY DISORDER
     Dosage: 150 MG, DAILY (DIVIDED DOSE, FREQUENCY UNKNOWN)
     Route: 048
     Dates: start: 20090916
  10. HOCHU-EKKI-TO [Concomitant]
     Active Substance: UNSPECIFIED INGREDIENT
     Indication: DECREASED APPETITE
     Dosage: 7.5 G, DAILY (DIVIDED DOSE, FREQUENCY UNKNOWN)
     Route: 048
     Dates: start: 20130710

REACTIONS (3)
  - Hepatic cancer [Recovered/Resolved]
  - Rash [Recovering/Resolving]
  - Hepatitis [Not Recovered/Not Resolved]

NARRATIVE: CASE EVENT DATE: 20151211
